FAERS Safety Report 12352718 (Version 1)
Quarter: 2016Q2

REPORT INFORMATION
  Report Type: Spontaneous
  Country: US (occurrence: US)
  Receive Date: 20160510
  Receipt Date: 20160510
  Transmission Date: 20160815
  Serious: No
  Sender: FDA-Public Use
  Company Number: ADR-2015-01248

PATIENT
  Age: 47 Year
  Sex: Male

DRUGS (1)
  1. BACLOFEN. [Suspect]
     Active Substance: BACLOFEN
     Route: 037

REACTIONS (5)
  - Muscle spasticity [Unknown]
  - Pain [Unknown]
  - Pain in extremity [Unknown]
  - Hypertonia [Unknown]
  - Extremity contracture [Unknown]

NARRATIVE: CASE EVENT DATE: 201506
